FAERS Safety Report 12321507 (Version 1)
Quarter: 2016Q2

REPORT INFORMATION
  Report Type: Spontaneous
  Country: US (occurrence: US)
  Receive Date: 20160502
  Receipt Date: 20160502
  Transmission Date: 20160815
  Serious: No
  Sender: FDA-Public Use
  Company Number: US-BAYER-2016-079865

PATIENT
  Age: 61 Year
  Sex: Male
  Weight: 95.23 kg

DRUGS (6)
  1. MIRALAX [Suspect]
     Active Substance: POLYETHYLENE GLYCOL 3350
     Indication: CONSTIPATION
     Dosage: 1 DF, UNK WITH LIQUID
  2. MIRABEGRON [Concomitant]
     Active Substance: MIRABEGRON
     Indication: DYSURIA
     Dosage: UNK
  3. METAMUCIL [Concomitant]
     Active Substance: PLANTAGO SEED
     Dosage: 4 DF, BID
  4. ALFUZOSIN [Concomitant]
     Active Substance: ALFUZOSIN
     Indication: DYSURIA
     Dosage: UNK
  5. FINASTERIDE. [Concomitant]
     Active Substance: FINASTERIDE
     Indication: DYSURIA
     Dosage: UNK
  6. GABAPENTIN. [Concomitant]
     Active Substance: GABAPENTIN

REACTIONS (1)
  - Drug ineffective [None]
